FAERS Safety Report 8181279-X (Version None)
Quarter: 2012Q1

REPORT INFORMATION
  Report Type: 
  Country: None (occurrence: None)
  Receive Date: 20120302
  Receipt Date: 20120224
  Transmission Date: 20120608
  Serious: Yes (Other)
  Sender: FDA-Public Use
  Company Number: BR-PFIZER INC-2012050654

PATIENT
  Sex: Female

DRUGS (1)
  1. LYRICA [Suspect]
     Indication: BACK PAIN
     Dosage: UNK
     Route: 048
     Dates: end: 20120204

REACTIONS (11)
  - BLISTER [None]
  - NASAL CONGESTION [None]
  - BEDRIDDEN [None]
  - FEELING ABNORMAL [None]
  - VISUAL IMPAIRMENT [None]
  - LACRIMATION INCREASED [None]
  - RASH [None]
  - ABDOMINAL PAIN [None]
  - MYALGIA [None]
  - HEADACHE [None]
  - DIARRHOEA [None]
